FAERS Safety Report 8851268 (Version 2)
Quarter: 2012Q4

REPORT INFORMATION
  Report Type: 
  Country: ES (occurrence: ES)
  Receive Date: 20121019
  Receipt Date: 20121218
  Transmission Date: 20130627
  Serious: Yes (Other)
  Sender: FDA-Public Use
  Company Number: PHHY2012ES091097

PATIENT
  Age: 47 Year
  Sex: Female

DRUGS (5)
  1. PREDNISONE [Suspect]
     Dosage: 5 mg, per day
  2. METHOTREXATE [Suspect]
     Dosage: 7.5 mg, QW
  3. METHOTREXATE [Suspect]
     Dosage: 20 mg, QW
  4. NSAID^S [Suspect]
  5. METFORMIN [Concomitant]
     Indication: DIABETES MELLITUS

REACTIONS (2)
  - Hepatotoxicity [Unknown]
  - Drug ineffective [Unknown]
